FAERS Safety Report 9733549 (Version 1)
Quarter: 2013Q4

REPORT INFORMATION
  Report Type: Spontaneous
  Country: CA (occurrence: CA)
  Receive Date: 20131205
  Receipt Date: 20131205
  Transmission Date: 20140711
  Serious: Yes (Hospitalization, Other)
  Sender: FDA-Public Use
  Company Number: CA-ROCHE-1309999

PATIENT
  Age: 45 Year
  Sex: Male

DRUGS (14)
  1. MYCOPHENOLATE MOFETIL [Suspect]
     Indication: PRODUCT USED FOR UNKNOWN INDICATION
     Route: 065
  2. PROGRAF [Suspect]
     Indication: PRODUCT USED FOR UNKNOWN INDICATION
     Route: 065
  3. ATORVASTATIN CALCIUM [Concomitant]
     Route: 065
  4. CALCITRIOL [Concomitant]
     Route: 065
  5. CALCIUM CARBONATE [Concomitant]
     Route: 065
  6. HUMALOG [Concomitant]
     Route: 030
  7. HUMALOG [Concomitant]
     Route: 065
  8. HUMULIN N INSULIN [Concomitant]
     Route: 058
  9. LEVOTHYROXINE [Concomitant]
     Route: 065
  10. PANTOPRAZOLE [Concomitant]
     Route: 065
  11. PREDNISONE [Concomitant]
     Route: 065
  12. TAMSULOSIN [Concomitant]
     Route: 065
  13. SULFAMETHOXAZOLE/TRIMETHOPRIM [Concomitant]
     Route: 065
  14. VALACYCLOVIR [Concomitant]
     Route: 065

REACTIONS (4)
  - Decreased appetite [Recovered/Resolved]
  - Diarrhoea [Recovered/Resolved]
  - Odynophagia [Recovered/Resolved]
  - Weight decreased [Recovered/Resolved]
